FAERS Safety Report 23450630 (Version 1)
Quarter: 2024Q1

REPORT INFORMATION
  Report Type: Spontaneous
  Country: IT (occurrence: IT)
  Receive Date: 20240129
  Receipt Date: 20240129
  Transmission Date: 20240409
  Serious: Yes (Death, Life-Threatening)
  Sender: FDA-Public Use
  Company Number: IT-MACLEODS PHARMACEUTICALS US LTD-MAC2024045518

PATIENT

DRUGS (1)
  1. METFORMIN [Suspect]
     Active Substance: METFORMIN HYDROCHLORIDE
     Indication: Diabetes mellitus
     Dosage: 850 MILLIGRAM, TID
     Route: 048

REACTIONS (6)
  - Myocardial infarction [Fatal]
  - Hypotension [Fatal]
  - Acute kidney injury [Unknown]
  - Toxicity to various agents [Unknown]
  - Venous oxygen partial pressure abnormal [Unknown]
  - Lactic acidosis [Unknown]
